FAERS Safety Report 5935298-1 (Version None)
Quarter: 2008Q4

REPORT INFORMATION
  Report Type: 
  Country: None (occurrence: None)
  Receive Date: 20081029
  Receipt Date: 20081029
  Transmission Date: 20090506
  Serious: No
  Sender: FDA-Public Use
  Company Number: None

PATIENT
  Age: 76 Year
  Sex: Male
  Weight: 94.8 kg

DRUGS (1)
  1. INSULIN [Suspect]
     Indication: DIABETES MELLITUS
     Dosage: 5-6 UNITS BID SQ
     Route: 058
     Dates: start: 20080227, end: 20080625

REACTIONS (2)
  - DIZZINESS [None]
  - PRESYNCOPE [None]
